FAERS Safety Report 17231228 (Version 3)
Quarter: 2020Q1

REPORT INFORMATION
  Report Type: Spontaneous
  Country: US (occurrence: US)
  Receive Date: 20200103
  Receipt Date: 20200305
  Transmission Date: 20200409
  Serious: No
  Sender: FDA-Public Use
  Company Number: US-PFIZER INC-2018034792

PATIENT
  Age: 67 Year
  Sex: Female
  Weight: 63.5 kg

DRUGS (1)
  1. GENOTROPIN [Suspect]
     Active Substance: SOMATROPIN
     Indication: HYPOPITUITARISM
     Dosage: 0.2MG, (ONCE A DAY INJECTION, ALTERNATES THIGHS)7 DAYS A WEEK
     Dates: start: 2004

REACTIONS (3)
  - Product dose omission [Unknown]
  - Pain [Unknown]
  - Device issue [Unknown]

NARRATIVE: CASE EVENT DATE: 201801
